FAERS Safety Report 6491489-5 (Version None)
Quarter: 2009Q4

REPORT INFORMATION
  Report Type: 
  Country: None (occurrence: None)
  Receive Date: 20091211
  Receipt Date: 20091202
  Transmission Date: 20100525
  Serious: Yes (Other)
  Sender: FDA-Public Use
  Company Number: US-JNJCH-2009031514

PATIENT
  Age: 2 Year
  Sex: Male
  Weight: 9.1 kg

DRUGS (1)
  1. CHILDREN'S BENADRYL ALLERGY CHERRY LIQUID [Suspect]
     Indication: ACCIDENTAL EXPOSURE
     Dosage: TEXT:ABOUT HALF A BOTTLE ONCE
     Route: 048
     Dates: start: 20091202, end: 20091202

REACTIONS (4)
  - ABASIA [None]
  - ACCIDENTAL DRUG INTAKE BY CHILD [None]
  - PRODUCT QUALITY ISSUE [None]
  - SOMNOLENCE [None]
